FAERS Safety Report 19868370 (Version 1)
Quarter: 2021Q3

REPORT INFORMATION
  Report Type: Report from Study
  Country: FR (occurrence: FR)
  Receive Date: 20210921
  Receipt Date: 20210921
  Transmission Date: 20211014
  Serious: Yes (Hospitalization)
  Sender: FDA-Public Use
  Company Number: FR-SERVIER-S21010139

PATIENT

DRUGS (8)
  1. PEGASPARGASE [Suspect]
     Active Substance: PEGASPARGASE
     Indication: ACUTE LYMPHOCYTIC LEUKAEMIA
     Dosage: 2325 IU (D4)
     Route: 042
     Dates: start: 20210719
  2. TN UNSPECIFIED [Concomitant]
     Indication: ACUTE LYMPHOCYTIC LEUKAEMIA
     Dosage: 15 MG (D31)
     Route: 037
     Dates: start: 20210817
  3. TN UNSPECIFIED [Concomitant]
     Indication: ACUTE LYMPHOCYTIC LEUKAEMIA
     Dosage: 930 MG (D29)
     Route: 065
     Dates: start: 20210817
  4. TN UNSPECIFIED [Concomitant]
     Indication: ACUTE LYMPHOCYTIC LEUKAEMIA
     Dosage: 23 MG, (D1, D8, D15)
     Route: 065
     Dates: start: 20210716
  5. TN UNSPECIFIED [Concomitant]
     Indication: ACUTE LYMPHOCYTIC LEUKAEMIA
     Dosage: 30 MG (D31)
     Route: 037
     Dates: start: 20210817
  6. TN UNSPECIFIED [Concomitant]
     Dosage: 70 MG (D31)
     Route: 065
     Dates: start: 20210817
  7. TN UNSPECIFIED [Concomitant]
     Indication: ACUTE LYMPHOCYTIC LEUKAEMIA
     Dosage: 1.4 MG (D1, D8, D15)
     Route: 065
     Dates: start: 20210716
  8. TN UNSPECIFIED [Concomitant]
     Indication: ACUTE LYMPHOCYTIC LEUKAEMIA
     Dosage: 12 MG, (D31)
     Route: 037
     Dates: start: 20210817

REACTIONS (1)
  - Venoocclusive disease [Recovered/Resolved]

NARRATIVE: CASE EVENT DATE: 20210901
